FAERS Safety Report 6882160-6 (Version None)
Quarter: 2010Q3

REPORT INFORMATION
  Report Type: 
  Country: None (occurrence: None)
  Receive Date: 20100729
  Receipt Date: 20100721
  Transmission Date: 20110219
  Serious: Yes (Other)
  Sender: FDA-Public Use
  Company Number: KR-ASTRAZENECA-2010SE33963

PATIENT

DRUGS (1)
  1. BUPIVACAINE HCL [Suspect]
     Indication: ANORECTAL OPERATION
     Route: 037

REACTIONS (2)
  - CAUDA EQUINA SYNDROME [None]
  - DEAFNESS [None]
